FAERS Safety Report 9173367 (Version 1)
Quarter: 2013Q1

REPORT INFORMATION
  Report Type: Spontaneous
  Country: SE (occurrence: None)
  Receive Date: 20130313
  Receipt Date: 20130313
  Transmission Date: 20140127
  Serious: Yes (Other)
  Sender: FDA-Public Use
  Company Number: 201302005

PATIENT
  Age: 54 Year
  Sex: Female

DRUGS (1)
  1. XIAPEX (CLOSTRIDIAL COLLAGENASE) [Suspect]
     Indication: DUPUYTREN^S CONTRACTURE
     Dosage: 0.58 MG, 1 IN 1 D, INTRALESIONAL
     Dates: start: 20120425, end: 20120425

REACTIONS (7)
  - Injection site swelling [None]
  - Injection site haematoma [None]
  - Skin lesion [None]
  - Poor peripheral circulation [None]
  - Dupuytren^s contracture [None]
  - Disease recurrence [None]
  - Procedural complication [None]
